FAERS Safety Report 9078849 (Version 1)
Quarter: 2013Q1

REPORT INFORMATION
  Report Type: Report from Study
  Country: US (occurrence: US)
  Receive Date: 20130130
  Receipt Date: 20130130
  Transmission Date: 20140127
  Serious: No
  Sender: FDA-Public Use
  Company Number: US-ABBOTT-12P-163-0960338-00

PATIENT
  Age: 66 None
  Sex: Female
  Weight: 65.38 kg

DRUGS (20)
  1. HUMIRA 40 MG/0.8 ML PEN [Suspect]
     Indication: CROHN^S DISEASE
  2. HUMIRA 40 MG/0.8 ML PEN [Suspect]
     Indication: RHEUMATOID ARTHRITIS
  3. FEXOFENADINE HCL [Concomitant]
     Indication: SEASONAL ALLERGY
  4. ESTRADIOL [Concomitant]
     Indication: HORMONE REPLACEMENT THERAPY
  5. NASONEX [Concomitant]
     Indication: HYPERSENSITIVITY
  6. OMEPRAZOLE [Concomitant]
     Indication: GASTROOESOPHAGEAL REFLUX DISEASE
  7. ATORVASTATIN [Concomitant]
     Indication: BLOOD CHOLESTEROL INCREASED
  8. PEPCID AC [Concomitant]
     Indication: GASTROOESOPHAGEAL REFLUX DISEASE
  9. IMMODIUM [Concomitant]
     Indication: CROHN^S DISEASE
     Dosage: AS REQURIED: RARELY USED
  10. GAS X [Concomitant]
     Indication: CROHN^S DISEASE
  11. ACETAMINOPHEN [Concomitant]
     Indication: PAIN
  12. PSEUDOEPHEDRINE HCL [Concomitant]
     Indication: SEASONAL ALLERGY
  13. GLUCOSAMINE/CHONDROITIN [Concomitant]
     Indication: RHEUMATOID ARTHRITIS
  14. GLUCOSAMINE/CHONDROITIN [Concomitant]
     Indication: OSTEOARTHRITIS
  15. CALCIUM/MAGNESIUM/ZINC/VITAMIN D3 [Concomitant]
     Indication: NUTRITIONAL SUPPLEMENTATION
  16. MULTIVITAMIN WITH IRON [Concomitant]
     Indication: SUPPLEMENTATION THERAPY
  17. BEANO [Concomitant]
     Indication: CROHN^S DISEASE
  18. SYSTANE [Concomitant]
     Indication: DRY EYE
  19. PATANOL [Concomitant]
     Indication: EYE ALLERGY
  20. FOLIC ACID [Concomitant]
     Indication: ALOPECIA

REACTIONS (7)
  - Asthenia [Recovered/Resolved]
  - Asthenia [Recovered/Resolved]
  - Disturbance in attention [Recovered/Resolved]
  - Fatigue [Recovered/Resolved]
  - Injection site bruising [Recovered/Resolved]
  - Injection site haemorrhage [Not Recovered/Not Resolved]
  - Injection site urticaria [Unknown]
